FAERS Safety Report 6972661-4 (Version None)
Quarter: 2010Q3

REPORT INFORMATION
  Report Type: 
  Country: None (occurrence: None)
  Receive Date: 20100909
  Receipt Date: 20100830
  Transmission Date: 20110219
  Serious: Yes (Other)
  Sender: FDA-Public Use
  Company Number: JP-PFIZER INC-2010109167

PATIENT

DRUGS (1)
  1. CABASER [Suspect]
     Dosage: 2.5 MG, 1X/DAY
     Route: 048
     Dates: start: 20091101

REACTIONS (2)
  - NASOPHARYNGITIS [None]
  - NEUROLEPTIC MALIGNANT SYNDROME [None]
